FAERS Safety Report 25628809 (Version 1)
Quarter: 2025Q3

REPORT INFORMATION
  Report Type: Report from Study
  Country: JP (occurrence: JP)
  Receive Date: 20250731
  Receipt Date: 20250731
  Transmission Date: 20251021
  Serious: Yes (Hospitalization, Disabling)
  Sender: JOHNSON AND JOHNSON
  Company Number: JP-JNJFOC-20250711424

PATIENT
  Age: 63 Year
  Sex: Male

DRUGS (2)
  1. RIVAROXABAN [Suspect]
     Active Substance: RIVAROXABAN
     Indication: Product used for unknown indication
     Route: 048
     Dates: end: 20221021
  2. ASPIRIN [Suspect]
     Active Substance: ASPIRIN
     Indication: Product used for unknown indication
     Route: 048

REACTIONS (8)
  - Thalamus haemorrhage [Not Recovered/Not Resolved]
  - Cerebral ventricular rupture [Unknown]
  - Hydrocephalus [Unknown]
  - Depressed level of consciousness [Unknown]
  - Hemiparesis [Unknown]
  - Dysarthria [Unknown]
  - Sensory disturbance [Unknown]
  - Vomiting [Unknown]

NARRATIVE: CASE EVENT DATE: 20221021
